FAERS Safety Report 8491761-3 (Version None)
Quarter: 2012Q3

REPORT INFORMATION
  Report Type: 
  Country: None (occurrence: None)
  Receive Date: 20120706
  Receipt Date: 20120626
  Transmission Date: 20120928
  Serious: Yes (Hospitalization, Other)
  Sender: FDA-Public Use
  Company Number: AU-JNJFOC-20120614306

PATIENT
  Age: 49 Year
  Sex: Female

DRUGS (1)
  1. FENTANYL-100 [Suspect]
     Indication: FIBROMYALGIA
     Route: 050

REACTIONS (6)
  - INTENTIONAL DRUG MISUSE [None]
  - DRUG ABUSE [None]
  - DRUG DIVERSION [None]
  - ENDOCARDITIS [None]
  - INFECTION [None]
  - ACCIDENTAL OVERDOSE [None]
